FAERS Safety Report 8362513 (Version 3)
Quarter: 2015Q3

REPORT INFORMATION
  Report Type: Report from Study
  Country: US (occurrence: US)
  Receive Date: 20120130
  Receipt Date: 20150714
  Transmission Date: 20151125
  Serious: Yes (Death, Other)
  Sender: FDA-Public Use
  Company Number: US-ROCHE-1034583

PATIENT
  Sex: Female
  Weight: 54.5 kg

DRUGS (18)
  1. HERCEPTIN [Suspect]
     Active Substance: TRASTUZUMAB
     Indication: PRODUCT USED FOR UNKNOWN INDICATION
     Route: 065
  2. ADRIAMYCIN [Concomitant]
     Active Substance: DOXORUBICIN HYDROCHLORIDE
  3. CYTOXAN [Concomitant]
     Active Substance: CYCLOPHOSPHAMIDE
  4. TAXOTERE [Concomitant]
     Active Substance: DOCETAXEL
  5. TAXOL [Concomitant]
     Active Substance: PACLITAXEL
  6. DARVOCET [Concomitant]
     Active Substance: ACETAMINOPHEN\PROPOXYPHENE HYDROCHLORIDE
  7. AVASTIN [Suspect]
     Active Substance: BEVACIZUMAB
     Indication: BREAST CANCER FEMALE
     Route: 042
  8. NEULASTA [Concomitant]
     Active Substance: PEGFILGRASTIM
     Route: 065
  9. MITOXANTRONE [Concomitant]
     Active Substance: MITOXANTRONE HYDROCHLORIDE
     Route: 042
     Dates: start: 200511
  10. TAMOXIFEN [Concomitant]
     Active Substance: TAMOXIFEN
  11. BENADRYL [Concomitant]
     Active Substance: DIPHENHYDRAMINE HYDROCHLORIDE
     Route: 042
  12. AVASTIN [Suspect]
     Active Substance: BEVACIZUMAB
     Indication: BREAST CANCER FEMALE
     Route: 042
     Dates: start: 20051201
  13. NEXIUM [Concomitant]
     Active Substance: ESOMEPRAZOLE MAGNESIUM
  14. ACTONEL [Concomitant]
     Active Substance: RISEDRONATE SODIUM
  15. LEUCOVORIN. [Concomitant]
     Active Substance: LEUCOVORIN
     Route: 042
     Dates: start: 200511
  16. DECADRON [Concomitant]
     Active Substance: DEXAMETHASONE
     Route: 042
  17. KYTRIL [Concomitant]
     Active Substance: GRANISETRON HYDROCHLORIDE
     Route: 042
  18. 5-FLUOROURACIL [Concomitant]
     Active Substance: FLUOROURACIL
     Route: 042
     Dates: start: 200511

REACTIONS (9)
  - Off label use [Unknown]
  - Bone marrow failure [Unknown]
  - Drug ineffective [Unknown]
  - Leukopenia [Unknown]
  - Haemorrhage [Unknown]
  - Metastases to liver [Fatal]
  - Abdominal distension [Unknown]
  - Abdominal discomfort [Unknown]
  - Alopecia [Unknown]
